FAERS Safety Report 7030718-6 (Version None)
Quarter: 2010Q4

REPORT INFORMATION
  Report Type: 
  Country: None (occurrence: None)
  Receive Date: 20101006
  Receipt Date: 20100920
  Transmission Date: 20110411
  Serious: Yes (Hospitalization)
  Sender: FDA-Public Use
  Company Number: US-BAYER-201019979BCC

PATIENT
  Age: 63 Year
  Sex: Female

DRUGS (1)
  1. FINACEA [Suspect]
     Indication: ROSACEA
     Dosage: TOTAL DAILY DOSE: 2 G
     Route: 061
     Dates: start: 20100726, end: 20100913

REACTIONS (1)
  - APPENDICECTOMY [None]
